FAERS Safety Report 21363075 (Version 1)
Quarter: 2022Q3

REPORT INFORMATION
  Report Type: Other
  Country: DE (occurrence: DE)
  Receive Date: 20220922
  Receipt Date: 20220922
  Transmission Date: 20221027
  Serious: Yes (Hospitalization)
  Sender: FDA-Public Use
  Company Number: DE-DENTSPLY-2022SCDP000271

PATIENT
  Age: 36 Year
  Sex: Female

DRUGS (2)
  1. MEPIVACAINE [Suspect]
     Active Substance: MEPIVACAINE HYDROCHLORIDE
     Indication: Product used for unknown indication
     Dosage: UNK
     Route: 030
  2. DEXAMETHASONE PALMITATE [Suspect]
     Active Substance: DEXAMETHASONE PALMITATE
     Indication: Product used for unknown indication
     Dosage: 4 MG LIPOTALON
     Route: 030

REACTIONS (4)
  - Muscular weakness [Unknown]
  - Fall [Unknown]
  - Dysphagia [Unknown]
  - Dizziness [Unknown]
